FAERS Safety Report 5067135-4 (Version None)
Quarter: 2006Q3

REPORT INFORMATION
  Report Type: 
  Country: None (occurrence: None)
  Receive Date: 20060801
  Receipt Date: 20060719
  Transmission Date: 20061208
  Serious: Yes (Other)
  Sender: FDA-Public Use
  Company Number: BE-AMGEN-UK186758

PATIENT
  Sex: Female
  Weight: 75 kg

DRUGS (5)
  1. PALIFERMIN [Suspect]
     Indication: PERIPHERAL BLOOD STEM CELL APHERESIS
     Route: 042
     Dates: start: 20060710, end: 20060712
  2. CARMUSTINE [Concomitant]
     Route: 065
  3. ETOPOSIDE [Concomitant]
     Route: 065
  4. CYTARABINE [Concomitant]
     Route: 065
  5. METHOTREXATE [Concomitant]
     Route: 065

REACTIONS (6)
  - BURNING SENSATION [None]
  - CAPILLARY LEAK SYNDROME [None]
  - FLUID RETENTION [None]
  - HYPERSENSITIVITY [None]
  - RASH [None]
  - STOMATITIS [None]
